FAERS Safety Report 5156107-7 (Version None)
Quarter: 2006Q4

REPORT INFORMATION
  Report Type: 
  Country: None (occurrence: None)
  Receive Date: 20061122
  Receipt Date: 20061117
  Transmission Date: 20070319
  Serious: Yes (Other)
  Sender: FDA-Public Use
  Company Number: 2006UW24775

PATIENT
  Age: 56 Year
  Sex: Female
  Weight: 77.1 kg

DRUGS (2)
  1. PULMICORT TURBHALER [Suspect]
     Indication: ASTHMA
     Dosage: 1 PUFF BID
     Route: 055
     Dates: start: 20061101
  2. PHENOBARBITAL TAB [Concomitant]

REACTIONS (4)
  - BRAIN OEDEMA [None]
  - CHEST DISCOMFORT [None]
  - HEADACHE [None]
  - WEIGHT INCREASED [None]
